FAERS Safety Report 13884655 (Version 2)
Quarter: 2017Q3

REPORT INFORMATION
  Report Type: Report from Study
  Country: RU (occurrence: RU)
  Receive Date: 20170821
  Receipt Date: 20170830
  Transmission Date: 20171127
  Serious: Yes (Hospitalization)
  Sender: FDA-Public Use
  Company Number: RU-CELGENEUS-RUS-2016114629

PATIENT
  Age: 60 Year
  Sex: Female

DRUGS (40)
  1. KETOROL [Concomitant]
     Active Substance: KETOROLAC TROMETHAMINE
     Route: 065
     Dates: start: 20161017
  2. GLUCOSE [Concomitant]
     Active Substance: DEXTROSE
     Indication: CARDIAC DISORDER
     Route: 065
     Dates: start: 20161014, end: 20161018
  3. VITAMIN C [Concomitant]
     Active Substance: ASCORBIC ACID
     Indication: CARDIAC DISORDER
     Route: 065
     Dates: start: 20161025, end: 20161029
  4. MAGNESIUM SULFATE. [Concomitant]
     Active Substance: MAGNESIUM SULFATE
     Indication: CARDIAC DISORDER
     Route: 065
     Dates: start: 20161108, end: 20161112
  5. KETOROL [Concomitant]
     Active Substance: KETOROLAC TROMETHAMINE
     Indication: BONE PAIN
     Route: 065
     Dates: start: 20161003, end: 20161014
  6. PHENAZEPAM [Concomitant]
     Active Substance: PHENAZEPAM
     Indication: BONE PAIN
     Route: 065
     Dates: start: 20161014, end: 20161017
  7. POTASSIUM CHLORIDE. [Concomitant]
     Active Substance: POTASSIUM CHLORIDE
     Indication: PROPHYLAXIS
     Route: 065
     Dates: start: 20161025, end: 20161129
  8. ANALGIN [Concomitant]
     Active Substance: METAMIZOLE SODIUM
     Indication: PROPHYLAXIS
     Route: 065
     Dates: start: 20161025, end: 20161029
  9. VITAMIN B6 [Concomitant]
     Active Substance: PYRIDOXINE HYDROCHLORIDE
     Indication: CARDIAC DISORDER
     Route: 065
     Dates: start: 20161014, end: 20161018
  10. NEXIUM [Concomitant]
     Active Substance: ESOMEPRAZOLE MAGNESIUM
     Indication: BILIARY DYSKINESIA
     Route: 065
     Dates: start: 20161013, end: 20161021
  11. FENDIVIA [Concomitant]
     Indication: BONE PAIN
     Route: 065
     Dates: start: 20161014, end: 20161102
  12. KETONAL [Concomitant]
     Active Substance: KETOPROFEN
     Route: 065
     Dates: start: 20161017
  13. ELZEPAM [Concomitant]
     Indication: INSOMNIA
     Route: 065
     Dates: start: 20161108, end: 20161114
  14. ENAP [Concomitant]
     Active Substance: ENALAPRIL
     Indication: HYPERTENSION
     Route: 065
     Dates: start: 20160630
  15. BISOPROLOL [Concomitant]
     Active Substance: BISOPROLOL
     Indication: HYPERTENSION
     Route: 065
     Dates: start: 20160630
  16. POTASSIUM CHLORIDE. [Concomitant]
     Active Substance: POTASSIUM CHLORIDE
     Indication: CARDIAC DISORDER
     Route: 065
     Dates: start: 20161014, end: 20161018
  17. RANITIDIN [Concomitant]
     Active Substance: RANITIDINE HYDROCHLORIDE
     Indication: GASTRITIS
     Route: 065
     Dates: start: 20161014, end: 20161016
  18. KETONAL [Concomitant]
     Active Substance: KETOPROFEN
     Indication: PAIN
     Route: 065
     Dates: start: 20161024, end: 20161114
  19. ABRAXANE [Suspect]
     Active Substance: PACLITAXEL
     Indication: BREAST CANCER
     Dosage: 100
     Route: 041
     Dates: start: 20160927
  20. OMEPRAZOLE. [Concomitant]
     Active Substance: OMEPRAZOLE
     Indication: PRODUCT USED FOR UNKNOWN INDICATION
     Route: 065
     Dates: start: 20161003, end: 20161013
  21. GLUCOSE [Concomitant]
     Active Substance: DEXTROSE
     Route: 065
     Dates: start: 20161108, end: 20161112
  22. NEXIUM [Concomitant]
     Active Substance: ESOMEPRAZOLE MAGNESIUM
     Route: 065
     Dates: start: 20161024, end: 20161114
  23. ODESTON [Concomitant]
     Indication: BILIARY DYSKINESIA
     Route: 065
     Dates: start: 20161026, end: 20161114
  24. FERRUM LEK [Concomitant]
     Active Substance: FERROUS HYDROXIDE
     Indication: ANAEMIA PROPHYLAXIS
     Route: 065
     Dates: start: 20161031, end: 20161114
  25. FERRUM LEK [Concomitant]
     Active Substance: FERROUS HYDROXIDE
     Route: 065
     Dates: start: 20161011, end: 20161015
  26. VITAMIN B6 [Concomitant]
     Active Substance: PYRIDOXINE HYDROCHLORIDE
     Indication: PROPHYLAXIS
  27. RANITIDIN [Concomitant]
     Active Substance: RANITIDINE HYDROCHLORIDE
     Indication: PROPHYLAXIS
  28. MOTILIUM [Concomitant]
     Active Substance: DOMPERIDONE
     Route: 065
     Dates: start: 20161028, end: 20161114
  29. ELZEPAM [Concomitant]
     Indication: PROPHYLAXIS
  30. ATORVASTIN [Concomitant]
     Active Substance: ATORVASTATIN
     Indication: ARTERIOSCLEROSIS
     Route: 065
     Dates: start: 1997
  31. GLUCOSE [Concomitant]
     Active Substance: DEXTROSE
     Indication: PROPHYLAXIS
     Route: 065
     Dates: start: 20161025, end: 20161029
  32. INSULINE [Concomitant]
     Active Substance: INSULIN NOS
     Indication: PROPHYLAXIS
     Route: 065
     Dates: start: 20161108, end: 20161112
  33. ASPARKAM [Concomitant]
     Active Substance: MAGNESIUM ASPARTATE\POTASSIUM ASPARTATE
     Indication: CARDIOMYOPATHY
     Route: 065
     Dates: start: 20160829
  34. OMEPRAZOLE. [Concomitant]
     Active Substance: OMEPRAZOLE
     Route: 065
     Dates: start: 20160909
  35. ATEZOLIZUMAB. [Suspect]
     Active Substance: ATEZOLIZUMAB
     Indication: BREAST CANCER
     Route: 041
     Dates: start: 20160927
  36. ANALGIN [Concomitant]
     Active Substance: METAMIZOLE SODIUM
     Indication: CARDIAC DISORDER
     Route: 065
     Dates: start: 20161014, end: 20161018
  37. MOTILIUM [Concomitant]
     Active Substance: DOMPERIDONE
     Indication: BILIARY DYSKINESIA
     Route: 065
     Dates: start: 20161013, end: 20161021
  38. KETONAL [Concomitant]
     Active Substance: KETOPROFEN
     Indication: BONE PAIN
     Route: 065
     Dates: start: 20161012, end: 20161014
  39. VITAMIN C [Concomitant]
     Active Substance: ASCORBIC ACID
     Indication: PROPHYLAXIS
  40. MAGNESIUM SULFATE. [Concomitant]
     Active Substance: MAGNESIUM SULFATE
     Indication: PROPHYLAXIS

REACTIONS (1)
  - Dyspnoea [Recovered/Resolved]

NARRATIVE: CASE EVENT DATE: 20161108
